FAERS Safety Report 13839496 (Version 2)
Quarter: 2018Q4

REPORT INFORMATION
  Report Type: Report from Study
  Country: KR (occurrence: KR)
  Receive Date: 20170807
  Receipt Date: 20181008
  Transmission Date: 20190204
  Serious: Yes (Hospitalization)
  Sender: FDA-Public Use
  Company Number: KR-ROCHE-1971032

PATIENT
  Age: 45 Year
  Sex: Female
  Weight: 51 kg

DRUGS (11)
  1. SODIUM CHLORIDE. [Concomitant]
     Active Substance: SODIUM CHLORIDE
     Indication: EPISTAXIS
     Route: 065
     Dates: start: 20180130, end: 20180228
  2. TRASTUZUMAB EMTANSINE [Suspect]
     Active Substance: ADO-TRASTUZUMAB EMTANSINE
     Indication: HER-2 POSITIVE BREAST CANCER
     Dosage: ON 21/JUL/2017, THE PATIENT RECEIVED MOST RECENT DOSE 184.7 MG
     Route: 042
     Dates: start: 20161116
  3. MAXICLAN [Concomitant]
     Indication: PROPHYLAXIS
     Route: 065
     Dates: start: 20180619, end: 20180623
  4. PREGABALIN. [Concomitant]
     Active Substance: PREGABALIN
     Indication: PERIPHERAL SENSORY NEUROPATHY
     Route: 065
     Dates: start: 20180313, end: 20180330
  5. CARDUUS MARIANUS [Concomitant]
     Indication: ALANINE AMINOTRANSFERASE INCREASED
     Route: 065
     Dates: start: 20180313
  6. CAROL-F [Concomitant]
     Indication: PROPHYLAXIS
     Route: 065
     Dates: start: 20180619, end: 20180623
  7. URSODEOXYCHOLIC ACID [Concomitant]
     Active Substance: URSODIOL
     Indication: ALANINE AMINOTRANSFERASE INCREASED
     Route: 065
     Dates: start: 20180313
  8. CARDUUS MARIANUS [Concomitant]
     Indication: ASPARTATE AMINOTRANSFERASE INCREASED
  9. DULOXETINE. [Concomitant]
     Active Substance: DULOXETINE
     Indication: PERIPHERAL SENSORY NEUROPATHY
     Route: 065
     Dates: start: 20180313, end: 20180330
  10. URSODEOXYCHOLIC ACID [Concomitant]
     Active Substance: URSODIOL
     Indication: ASPARTATE AMINOTRANSFERASE INCREASED
  11. ATEZOLIZUMAB. [Suspect]
     Active Substance: ATEZOLIZUMAB
     Indication: HER-2 POSITIVE BREAST CANCER
     Dosage: ON 21/JUL/2017, THE PATIENT RECEIVED MOST RECENT DOSE.
     Route: 042
     Dates: start: 20161116

REACTIONS (1)
  - Hepatic adenoma [Not Recovered/Not Resolved]

NARRATIVE: CASE EVENT DATE: 20170727
